FAERS Safety Report 4519761-6 (Version None)
Quarter: 2004Q4

REPORT INFORMATION
  Report Type: 
  Country: None (occurrence: None)
  Receive Date: 20041203
  Receipt Date: 20041203
  Transmission Date: 20050328
  Serious: Yes (Life-Threatening, Hospitalization)
  Sender: FDA-Public Use
  Company Number: None

PATIENT
  Age: 53 Year
  Sex: Male
  Weight: 57.6068 kg

DRUGS (1)
  1. CELEBREX [Suspect]
     Indication: ARTHRALGIA
     Dosage: 200MG  QD  ORAL
     Route: 048

REACTIONS (4)
  - ANAPHYLACTOID REACTION [None]
  - ASTHENIA [None]
  - FEELING HOT [None]
  - TACHYCARDIA [None]
